FAERS Safety Report 10174887 (Version 2)
Quarter: 2014Q2

REPORT INFORMATION
  Report Type: Spontaneous
  Country: US (occurrence: US)
  Receive Date: 20140515
  Receipt Date: 20140519
  Transmission Date: 20141212
  Serious: Yes (Other)
  Sender: FDA-Public Use
  Company Number: US-BAYER-2014-069515

PATIENT
  Age: 34 Year
  Sex: Male

DRUGS (1)
  1. HELIXATE FS [Suspect]

REACTIONS (1)
  - Implantable defibrillator insertion [Unknown]
